FAERS Safety Report 18350606 (Version 1)
Quarter: 2020Q4

REPORT INFORMATION
  Report Type: Spontaneous
  Country: CN (occurrence: CN)
  Receive Date: 20201006
  Receipt Date: 20201006
  Transmission Date: 20210114
  Serious: Yes (Hospitalization)
  Sender: FDA-Public Use
  Company Number: NVSC2020CN266017

PATIENT
  Age: 12 Year
  Sex: Female
  Weight: 45 kg

DRUGS (11)
  1. GLUCOSE [Concomitant]
     Active Substance: DEXTROSE
     Indication: PRODUCT USED FOR UNKNOWN INDICATION
     Dosage: 500 ML, QD (SOLVENT)
     Route: 041
     Dates: start: 20200824, end: 20200826
  2. VANCOCIN [Concomitant]
     Active Substance: VANCOMYCIN HYDROCHLORIDE
     Indication: INFECTION
     Dosage: 600 MG, TID
     Route: 041
     Dates: start: 20200828, end: 20200914
  3. NUOSHI [Concomitant]
     Indication: APLASTIC ANAEMIA
     Dosage: 60 MG, BID  (SOFT CAPSULE)
     Route: 048
     Dates: start: 20200824, end: 20200914
  4. SOLU-MEDROL [Concomitant]
     Active Substance: METHYLPREDNISOLONE SODIUM SUCCINATE
     Indication: APLASTIC ANAEMIA
     Dosage: 1200 MG, QD
     Route: 041
     Dates: start: 20200824, end: 20200826
  5. SODIUM CHLORIDE. [Concomitant]
     Active Substance: SODIUM CHLORIDE
     Indication: PRODUCT USED FOR UNKNOWN INDICATION
     Dosage: 100 ML, TID (SOLVENT)
     Route: 041
     Dates: start: 20200827, end: 20200901
  6. SANDIMMUN NEORAL [Suspect]
     Active Substance: CYCLOSPORINE
     Indication: APLASTIC ANAEMIA
     Dosage: 5 MG/KG, BID
     Route: 048
     Dates: start: 20200910, end: 20200911
  7. NEWCYSPIN [CYCLOSPORINE] [Suspect]
     Active Substance: CYCLOSPORINE
     Indication: APLASTIC ANAEMIA
     Dosage: 5 MG/KG, BID
     Route: 048
     Dates: start: 20200824, end: 20200909
  8. MEROPENEM. [Concomitant]
     Active Substance: MEROPENEM
     Indication: INFECTION
     Dosage: 0.9 G, TID
     Route: 041
     Dates: start: 20200827, end: 20200901
  9. GLUCOSE [Concomitant]
     Active Substance: DEXTROSE
     Dosage: 120 ML, TID (SOLVENT)
     Route: 041
     Dates: start: 20200828, end: 20200914
  10. SODIUM CHLORIDE. [Concomitant]
     Active Substance: SODIUM CHLORIDE
     Dosage: 250 ML, BID (SOLVENT)
     Route: 041
     Dates: start: 20200904, end: 20200915
  11. VORICONAZOLE. [Concomitant]
     Active Substance: VORICONAZOLE
     Indication: INFECTION
     Dosage: 0.36 G, BID
     Route: 041
     Dates: start: 20200904, end: 20200915

REACTIONS (2)
  - Myalgia [Recovering/Resolving]
  - Decreased appetite [Recovering/Resolving]

NARRATIVE: CASE EVENT DATE: 20200914
